FAERS Safety Report 4466667-7 (Version None)
Quarter: 2004Q4

REPORT INFORMATION
  Report Type: 
  Country: None (occurrence: None)
  Receive Date: 20041001
  Receipt Date: 20041001
  Transmission Date: 20050328
  Serious: No
  Sender: FDA-Public Use
  Company Number: None

PATIENT
  Age: 36 Year
  Sex: Male
  Weight: 75.7507 kg

DRUGS (1)
  1. VIOXX [Suspect]

REACTIONS (2)
  - ABDOMINAL PAIN UPPER [None]
  - HEART RATE INCREASED [None]
